FAERS Safety Report 4852667-1 (Version None)
Quarter: 2005Q4

REPORT INFORMATION
  Report Type: 
  Country: None (occurrence: None)
  Receive Date: 20051213
  Receipt Date: 20050517
  Transmission Date: 20060501
  Serious: Yes (Hospitalization)
  Sender: FDA-Public Use
  Company Number: US-MERCK-0505USA02122

PATIENT
  Age: 80 Year
  Sex: Female
  Weight: 74 kg

DRUGS (2)
  1. VIOXX [Suspect]
     Indication: ARTHRITIS
     Route: 048
     Dates: start: 20000101, end: 20040101
  2. ZOLOFT [Concomitant]
     Indication: DEPRESSION
     Route: 065

REACTIONS (6)
  - CEREBROVASCULAR ACCIDENT [None]
  - DEPRESSION [None]
  - HYPERTENSION [None]
  - INJURY [None]
  - NERVE BLOCK [None]
  - SURGERY [None]
